FAERS Safety Report 12855120 (Version 2)
Quarter: 2016Q4

REPORT INFORMATION
  Report Type: Report from Study
  Country: PL (occurrence: PL)
  Receive Date: 20161017
  Receipt Date: 20161107
  Transmission Date: 20170207
  Serious: Yes (Hospitalization)
  Sender: FDA-Public Use
  Company Number: PL-B.I. PHARMACEUTICALS,INC./RIDGEFIELD-2016-BI-59325BI

PATIENT
  Age: 63 Year
  Sex: Male
  Weight: 99.7 kg

DRUGS (12)
  1. APS-ATORVA [Concomitant]
     Indication: HYPERLIPIDAEMIA
     Route: 048
  2. DIUVER [Concomitant]
     Active Substance: TORSEMIDE
     Indication: HYPERTENSION
     Route: 048
  3. HEPARIGEN [Concomitant]
     Indication: STEATOHEPATITIS
     Dosage: 2 TABLET
     Route: 048
  4. BLINDED TIOTROPIUM BROMIDE+OLODATEROL [Suspect]
     Active Substance: OLODATEROL HYDROCHLORIDE\TIOTROPIUM BROMIDE MONOHYDRATE
     Indication: CHRONIC OBSTRUCTIVE PULMONARY DISEASE
     Route: 065
  5. OXYCARDIL [Concomitant]
     Active Substance: DILTIAZEM HYDROCHLORIDE
     Indication: MYOCARDIAL ISCHAEMIA
     Route: 048
  6. DEBUTIR [Concomitant]
     Indication: DIVERTICULUM
     Route: 048
  7. OXYCARDIL [Concomitant]
     Active Substance: DILTIAZEM HYDROCHLORIDE
     Indication: HYPERTENSION
  8. ACCUPRO [Concomitant]
     Active Substance: QUINAPRIL HYDROCHLORIDE
     Indication: HYPERTENSION
     Route: 048
  9. MONONIT [Concomitant]
     Indication: MYOCARDIAL ISCHAEMIA
     Route: 048
  10. ACARD [Concomitant]
     Active Substance: ASPIRIN
     Indication: MYOCARDIAL ISCHAEMIA
     Dosage: 1X5 MG
     Route: 048
  11. EUPHILLIN [Concomitant]
     Indication: CHRONIC OBSTRUCTIVE PULMONARY DISEASE
     Route: 048
  12. PANRAZOL [Concomitant]
     Active Substance: PANTOPRAZOLE SODIUM
     Indication: GASTRITIS
     Route: 048

REACTIONS (4)
  - Chest pain [Recovered/Resolved]
  - Back pain [Unknown]
  - Dyspnoea [Unknown]
  - Asthenia [Unknown]

NARRATIVE: CASE EVENT DATE: 20160907
